FAERS Safety Report 7281901-6 (Version None)
Quarter: 2011Q1

REPORT INFORMATION
  Report Type: 
  Country: None (occurrence: None)
  Receive Date: 20110208
  Receipt Date: 20110126
  Transmission Date: 20110831
  Serious: Yes (Death)
  Sender: FDA-Public Use
  Company Number: GB-MYLANLABS-2011S1001829

PATIENT
  Age: 68 Year
  Sex: Male

DRUGS (3)
  1. DILTIAZEM [Suspect]
     Indication: OVERDOSE
  2. PARACETAMOL [Suspect]
     Indication: OVERDOSE
  3. TRIFLUOPERAZINE HCL [Suspect]
     Indication: OVERDOSE

REACTIONS (1)
  - INTENTIONAL OVERDOSE [None]
